FAERS Safety Report 20946352 (Version 3)
Quarter: 2022Q2

REPORT INFORMATION
  Report Type: Report from Study
  Country: JP (occurrence: JP)
  Receive Date: 20220610
  Receipt Date: 20220628
  Transmission Date: 20220721
  Serious: Yes (Hospitalization, Other)
  Sender: FDA-Public Use
  Company Number: JP-ONO-2022JP015195

PATIENT
  Age: 66 Year
  Sex: Male
  Weight: 70 kg

DRUGS (10)
  1. BMS-986310 [Suspect]
     Active Substance: BMS-986310
     Indication: Non-small cell lung cancer
     Dosage: 40 MG, EVERYDAY (40 MG/DAY) ?CYCLE 1, DAY 1
     Route: 048
     Dates: start: 20220428, end: 20220531
  2. DOCETAXEL [Suspect]
     Active Substance: DOCETAXEL
     Indication: Non-small cell lung cancer
     Dosage: CYCLE 1, DAY 1, 1 IN 3 WEEK?ON 19-MAY-2022 (CYCLE 2, DAY 1) THE PATIENT RECEIVED HIS MOST RECENT DOS
     Route: 041
     Dates: start: 20220428
  3. RAMUCIRUMAB [Suspect]
     Active Substance: RAMUCIRUMAB
     Indication: Non-small cell lung cancer
     Dosage: CYCLE 1, DAY 1?ON 19-MAY-2022 (CYCLE 2, DAY 1) THE PATIENT RECEIVED HIS MOST RECENT DOSE OF RAMUCIRU
     Route: 041
     Dates: start: 20220428
  4. LEBENIN-S [Concomitant]
     Indication: Diarrhoea
     Dosage: 1 DF, Q8H, AFTER EACH MEAL, 3 IN 1 DAY
     Route: 048
     Dates: start: 20220521, end: 20220601
  5. ROSUVASTATIN [Concomitant]
     Active Substance: ROSUVASTATIN
     Indication: Hypercholesterolaemia
     Dosage: 2.5 MG, EVERYDAY (OD), AFTER BREAKFAST?TABLET, ORALLY DISINTEGRATING
     Route: 048
  6. PIOGLITAZONE [Concomitant]
     Active Substance: PIOGLITAZONE
     Indication: Type 2 diabetes mellitus
     Dosage: 15 MG, EVERYDAY, AFTER BREAKFAST?TABLET, ORALLY DISINTEGRATING
     Route: 048
  7. JARDIANCE [Concomitant]
     Active Substance: EMPAGLIFLOZIN
     Indication: Type 2 diabetes mellitus
     Dosage: 10 MG, EVERYDAY, AFTER BREAKFAST
     Route: 048
  8. TELMISARTAN [Concomitant]
     Active Substance: TELMISARTAN
     Indication: Hypertension
     Dosage: 40 MG, EVERYDAY, AFTER BREAKFAST
     Route: 048
  9. ICOSAPENT ETHYL [Concomitant]
     Active Substance: ICOSAPENT ETHYL
     Indication: Carotid arteriosclerosis
     Dosage: 900 MG, Q12H, AFTER BREAKFAST AND AFTER DINNER
     Route: 048
     Dates: end: 20220601
  10. TEPRENONE [Concomitant]
     Active Substance: TEPRENONE
     Indication: Abdominal pain upper
     Dosage: 0.5 G, Q8H, AFTER EACH MEAL, 3 IN 1 DAY
     Route: 048
     Dates: start: 20220430, end: 20220601

REACTIONS (2)
  - Gastric ulcer haemorrhage [Recovering/Resolving]
  - Duodenal ulcer haemorrhage [Recovering/Resolving]

NARRATIVE: CASE EVENT DATE: 20220601
